FAERS Safety Report 15605316 (Version 1)
Quarter: 2018Q4

REPORT INFORMATION
  Report Type: Spontaneous
  Country: KR (occurrence: KR)
  Receive Date: 20181112
  Receipt Date: 20181112
  Transmission Date: 20190205
  Serious: Yes (Other)
  Sender: FDA-Public Use
  Company Number: KR-SUN PHARMACEUTICAL INDUSTRIES LTD-2018RR-190661

PATIENT
  Age: 37 Year
  Sex: Female

DRUGS (5)
  1. IMATINIB. [Suspect]
     Active Substance: IMATINIB MESYLATE
     Indication: ACUTE LEUKAEMIA
     Dosage: 600 MG
     Route: 065
  2. DEXAMETHASONE. [Suspect]
     Active Substance: DEXAMETHASONE
     Indication: ACUTE LEUKAEMIA
     Dosage: 40 MG, DAYS 1-4, 11-14, AS INDUCTION CHEMOTHERAPY
     Route: 065
  3. CYCLOPHOSPHAMIDE. [Suspect]
     Active Substance: CYCLOPHOSPHAMIDE
     Indication: ACUTE LEUKAEMIA
     Dosage: 300 MG/M2, DAYS 1-3,  AS INDUCTION CHEMOTHERAPY
     Route: 065
  4. VINCRISTINE [Suspect]
     Active Substance: VINCRISTINE
     Indication: ACUTE LEUKAEMIA
     Dosage: 1.4 MG/M2 (MAX 2 MG), DAYS 4, 11, AS INDUCTION CHEMOTHERAPY
     Route: 065
  5. ADRIAMYCIN [Suspect]
     Active Substance: DOXORUBICIN HYDROCHLORIDE
     Indication: ACUTE LEUKAEMIA
     Dosage: 50 MG/M2, DAY 4, AS INDUCTION CHEMOTHERAPY
     Route: 065

REACTIONS (4)
  - Epistaxis [Recovered/Resolved]
  - Hypofibrinogenaemia [Recovered/Resolved]
  - Nausea [Unknown]
  - Vomiting [Unknown]
